FAERS Safety Report 10175722 (Version 2)
Quarter: 2014Q2

REPORT INFORMATION
  Report Type: Report from Study
  Country: CA (occurrence: CA)
  Receive Date: 20140516
  Receipt Date: 20140516
  Transmission Date: 20141212
  Serious: Yes (Other)
  Sender: FDA-Public Use
  Company Number: CA-ROCHE-1176621

PATIENT
  Age: 65 Year
  Sex: Female
  Weight: 57 kg

DRUGS (12)
  1. ACTEMRA [Suspect]
     Indication: RHEUMATOID ARTHRITIS
     Route: 042
     Dates: start: 20120827
  2. ACTEMRA [Suspect]
     Route: 042
     Dates: start: 20120924
  3. ACTEMRA [Suspect]
     Route: 042
     Dates: start: 20131024
  4. ACTEMRA [Suspect]
     Route: 042
     Dates: start: 20131121
  5. ACTEMRA [Suspect]
     Route: 042
     Dates: start: 20140424
  6. ACTEMRA [Suspect]
     Route: 042
  7. FOLIC ACID [Concomitant]
  8. VITAMIN B12 [Concomitant]
  9. METFORMIN [Concomitant]
  10. RAMIPRIL [Concomitant]
  11. CRESTOR [Concomitant]
  12. METHOTREXATE [Concomitant]

REACTIONS (6)
  - Hepatic enzyme increased [Unknown]
  - Neutrophil count increased [Unknown]
  - Fatigue [Unknown]
  - Influenza [Unknown]
  - Malaise [Unknown]
  - Hypertension [Unknown]
